FAERS Safety Report 18420076 (Version 3)
Quarter: 2020Q4

REPORT INFORMATION
  Report Type: Report from Study
  Country: US (occurrence: US)
  Receive Date: 20201023
  Receipt Date: 20201127
  Transmission Date: 20210114
  Serious: Yes (Life-Threatening, Hospitalization)
  Sender: FDA-Public Use
  Company Number: US-GILEAD-2019-0406915

PATIENT
  Age: 33 Year
  Sex: Male
  Weight: 88.5 kg

DRUGS (18)
  1. ETOPOSIDE. [Concomitant]
     Active Substance: ETOPOSIDE
     Indication: ACUTE LYMPHOCYTIC LEUKAEMIA
     Dosage: UNK
     Dates: start: 20190401
  2. IFOSFAMIDE. [Concomitant]
     Active Substance: IFOSFAMIDE
     Indication: ACUTE LYMPHOCYTIC LEUKAEMIA
     Dosage: UNK
     Dates: start: 20190401
  3. DAPTOMYCIN. [Concomitant]
     Active Substance: DAPTOMYCIN
     Dosage: UNK
     Dates: start: 20190417, end: 20190422
  4. VANCOMYCIN [Concomitant]
     Active Substance: VANCOMYCIN
     Dosage: UNK
     Dates: start: 20190412, end: 20190417
  5. BACTRIM DS [Concomitant]
     Active Substance: SULFAMETHOXAZOLE\TRIMETHOPRIM
     Dosage: BID M/W/F
     Dates: end: 20190430
  6. SODIUM BICARBONATE. [Concomitant]
     Active Substance: SODIUM BICARBONATE
     Dosage: UNK
     Dates: end: 20190401
  7. FLUDARABINE [Suspect]
     Active Substance: FLUDARABINE PHOSPHATE
     Indication: BONE MARROW CONDITIONING REGIMEN
     Dosage: 25 MG/M2, QD
     Route: 042
     Dates: start: 20190425, end: 20190426
  8. MEROPENEM. [Concomitant]
     Active Substance: MEROPENEM
     Dosage: 2 G, Q8H
     Route: 042
     Dates: start: 20190215
  9. LEUCOVORIN [FOLINIC ACID] [Concomitant]
     Active Substance: LEUCOVORIN
     Dosage: BID M/W/F
     Dates: end: 20190430
  10. MESNA. [Suspect]
     Active Substance: MESNA
     Indication: PROPHYLAXIS
     Dosage: 900 MG/M2, QD
     Route: 065
     Dates: start: 20190226, end: 20190226
  11. VANCOMYCIN [Concomitant]
     Active Substance: VANCOMYCIN
     Dosage: 250 MG, QID
     Route: 048
     Dates: start: 20190409, end: 20190505
  12. ROMIPLOSTIM [Concomitant]
     Active Substance: ROMIPLOSTIM
     Dosage: 2 MCG/KG
     Route: 058
     Dates: start: 20190321, end: 20190411
  13. KTE-X19 [Suspect]
     Active Substance: AXICABTAGENE CILOLEUCEL
     Indication: ACUTE LYMPHOCYTIC LEUKAEMIA
     Dosage: 1 X 10^6CAR+T CELLS/KG
     Route: 042
     Dates: start: 20190430, end: 20190430
  14. CYCLOPHOSPHAMIDE. [Suspect]
     Active Substance: CYCLOPHOSPHAMIDE
     Indication: BONE MARROW CONDITIONING REGIMEN
     Dosage: 900 MG/M2, QD
     Route: 042
     Dates: start: 20190427, end: 20190427
  15. VANCOMYCIN [Concomitant]
     Active Substance: VANCOMYCIN
     Dosage: 125 MG, QID
     Route: 048
     Dates: start: 20190505, end: 20190507
  16. LINEZOLID. [Concomitant]
     Active Substance: LINEZOLID
     Dosage: UNK
     Dates: start: 20190417, end: 20190422
  17. VANCOMYCIN [Concomitant]
     Active Substance: VANCOMYCIN
     Dosage: UNK
     Dates: start: 20190422
  18. VANCOMYCIN [Concomitant]
     Active Substance: VANCOMYCIN
     Dosage: 125 MG, BID
     Route: 048
     Dates: start: 20190507

REACTIONS (7)
  - Hypotension [Recovered/Resolved]
  - Sepsis [Recovered/Resolved]
  - Sinus tachycardia [Unknown]
  - Dyspnoea [Recovered/Resolved]
  - Cytokine release syndrome [Recovered/Resolved]
  - Acute respiratory failure [Recovered/Resolved]
  - Pyrexia [Recovered/Resolved]

NARRATIVE: CASE EVENT DATE: 20190506
